FAERS Safety Report 24003589 (Version 2)
Quarter: 2024Q3

REPORT INFORMATION
  Report Type: Report from Study
  Country: GR (occurrence: GR)
  Receive Date: 20240624
  Receipt Date: 20240710
  Transmission Date: 20241016
  Serious: Yes (Death, Life-Threatening, Other)
  Sender: ABBVIE
  Company Number: GR-ABBVIE-5811178

PATIENT
  Age: 76 Year
  Sex: Male

DRUGS (3)
  1. VENETOCLAX [Suspect]
     Active Substance: VENETOCLAX
     Indication: Chronic lymphocytic leukaemia
     Dosage: AS PER PROTOCOL
     Route: 048
     Dates: start: 20220218, end: 20230120
  2. RISPERDAL [Concomitant]
     Active Substance: RISPERIDONE
     Indication: Schizophrenia
     Route: 030
  3. OLANZAPINE [Concomitant]
     Active Substance: OLANZAPINE
     Indication: Schizophrenia
     Route: 048

REACTIONS (3)
  - Death [Fatal]
  - Asthenia [Unknown]
  - Fatigue [Unknown]

NARRATIVE: CASE EVENT DATE: 20231115
